FAERS Safety Report 9772789 (Version 1)
Quarter: 2013Q4

REPORT INFORMATION
  Report Type: Spontaneous
  Country: GB (occurrence: GB)
  Receive Date: 20131219
  Receipt Date: 20131219
  Transmission Date: 20140711
  Serious: Yes (Life-Threatening)
  Sender: FDA-Public Use
  Company Number: GB-BRISTOL-MYERS SQUIBB COMPANY-19916873

PATIENT
  Age: 73 Year
  Sex: Female

DRUGS (9)
  1. METFORMIN HCL [Suspect]
     Indication: DIABETES MELLITUS
     Route: 048
     Dates: end: 20131125
  2. IRBESARTAN [Suspect]
     Indication: HYPERTENSION
     Route: 048
     Dates: end: 20131125
  3. CYCLOSPORIN [Suspect]
     Dosage: DOSE REDUCED TO 25MG 2/DAY FROM FROM 26NOV13?16NOV13-25NOV13?26NOV13-27NOV13
     Route: 048
     Dates: start: 20131116, end: 20131127
  4. BISOPROLOL [Concomitant]
  5. CARBOCISTEINE [Concomitant]
  6. EFUDEX [Concomitant]
  7. FOLIC ACID [Concomitant]
  8. ISOSORBIDE [Concomitant]
  9. MABTHERA [Concomitant]

REACTIONS (1)
  - Renal failure [Unknown]
